FAERS Safety Report 9922641 (Version 1)
Quarter: 2014Q1

REPORT INFORMATION
  Report Type: Spontaneous
  Country: GB (occurrence: GB)
  Receive Date: 20140225
  Receipt Date: 20140225
  Transmission Date: 20141002
  Serious: Yes (Other)
  Sender: FDA-Public Use
  Company Number: GB-TEVA-462428ISR

PATIENT
  Age: 24 Year
  Sex: Male

DRUGS (2)
  1. TRIMETHOPRIM [Suspect]
     Dosage: 600 MILLIGRAM DAILY;
     Route: 048
     Dates: start: 20131206, end: 20140108
  2. HALOPERIDOL DECANOATE [Concomitant]
     Dosage: DOSE RECEIVED ON 4TH DECEMBER 2013. NORMALLY HAS ONCE A MONTH. LAST DOSE 4 DAYS AGO.
     Route: 030
     Dates: start: 20131204

REACTIONS (1)
  - Muscle spasms [Recovered/Resolved]
